FAERS Safety Report 14695014 (Version 1)
Quarter: 2018Q1

REPORT INFORMATION
  Report Type: Spontaneous
  Country: US (occurrence: US)
  Receive Date: 20180327
  Receipt Date: 20180327
  Transmission Date: 20180509
  Serious: No
  Sender: FDA-Public Use
  Company Number: None

PATIENT
  Age: 86 Year
  Sex: Male

DRUGS (2)
  1. DAPTOMYCIN 500MG HOSPIRA [Suspect]
     Active Substance: DAPTOMYCIN
     Indication: STAPHYLOCOCCAL INFECTION
     Route: 042
     Dates: start: 20180320, end: 20180326
  2. DAPTOMYCIN 500MG HOSPIRA [Suspect]
     Active Substance: DAPTOMYCIN
     Indication: BACTERAEMIA
     Route: 042
     Dates: start: 20180320, end: 20180326

REACTIONS (2)
  - Chills [None]
  - Myalgia [None]

NARRATIVE: CASE EVENT DATE: 20180322
